FAERS Safety Report 12629023 (Version 1)
Quarter: 2016Q3

REPORT INFORMATION
  Report Type: Spontaneous
  Country: CN (occurrence: CN)
  Receive Date: 20160808
  Receipt Date: 20160808
  Transmission Date: 20161109
  Serious: Yes (Hospitalization, Other)
  Sender: FDA-Public Use
  Company Number: CN-PAR PHARMACEUTICAL COMPANIES-2016SCPR015698

PATIENT

DRUGS (3)
  1. DEXAMETHASONE. [Suspect]
     Active Substance: DEXAMETHASONE
     Dosage: 3 MG / DAY
     Route: 065
     Dates: start: 201509, end: 201509
  2. DEXAMETHASONE. [Suspect]
     Active Substance: DEXAMETHASONE
     Indication: POLYCHONDRITIS
     Dosage: 5 MG / DAY
     Route: 065
     Dates: start: 201509, end: 201509
  3. DEXAMETHASONE. [Suspect]
     Active Substance: DEXAMETHASONE
     Dosage: 10 MG / DAY
     Route: 065
     Dates: start: 201509, end: 201509

REACTIONS (12)
  - Logorrhoea [Recovered/Resolved]
  - Condition aggravated [Recovered/Resolved]
  - Pyrexia [Recovered/Resolved]
  - Hallucination [Recovered/Resolved]
  - Delirium [Recovered/Resolved]
  - Mania [Recovered/Resolved]
  - Aggression [Recovered/Resolved]
  - Persecutory delusion [Recovered/Resolved]
  - Amnesia [Recovered/Resolved]
  - Cognitive disorder [Recovered/Resolved]
  - Insomnia [Recovered/Resolved]
  - Irritability [Recovered/Resolved]

NARRATIVE: CASE EVENT DATE: 201509
